FAERS Safety Report 5375431-6 (Version None)
Quarter: 2007Q2

REPORT INFORMATION
  Report Type: 
  Country: None (occurrence: None)
  Receive Date: 20070629
  Receipt Date: 20070626
  Transmission Date: 20071010
  Serious: Yes (Other)
  Sender: FDA-Public Use
  Company Number: CH-ROXANE LABORATORIES, INC-2007-DE-03789GD

PATIENT
  Age: 39 Year
  Sex: Female

DRUGS (6)
  1. TRAZODONE HCL [Suspect]
     Indication: INSOMNIA
  2. METHADONE HCL [Suspect]
     Indication: DRUG DEPENDENCE
  3. PAROXETINE HCL [Suspect]
     Indication: MAJOR DEPRESSION
  4. OPIPRAMOL [Suspect]
     Indication: MAJOR DEPRESSION
  5. AMITRIPTYLINE HCL [Suspect]
     Indication: MIGRAINE
  6. PRAZEPAM [Concomitant]
     Indication: MAJOR DEPRESSION

REACTIONS (2)
  - BIPOLAR I DISORDER [None]
  - SEROTONIN SYNDROME [None]
